FAERS Safety Report 23781839 (Version 2)
Quarter: 2024Q2

REPORT INFORMATION
  Report Type: Report from Study
  Country: CA (occurrence: CA)
  Receive Date: 20240425
  Receipt Date: 20240429
  Transmission Date: 20240716
  Serious: Yes (Hospitalization, Other)
  Sender: FDA-Public Use
  Company Number: CA-ABBVIE-5731398

PATIENT
  Age: 29 Year
  Sex: Male

DRUGS (2)
  1. RINVOQ [Suspect]
     Active Substance: UPADACITINIB
     Indication: Colitis ulcerative
     Dosage: END DATE 2024
     Route: 048
     Dates: start: 20240220
  2. RINVOQ [Suspect]
     Active Substance: UPADACITINIB
     Indication: Colitis ulcerative
     Route: 048
     Dates: start: 2024

REACTIONS (3)
  - Rectal abscess [Recovering/Resolving]
  - Abscess drainage [Recovered/Resolved]
  - Rectal fissure [Recovering/Resolving]

NARRATIVE: CASE EVENT DATE: 20240101
